FAERS Safety Report 7625712-8 (Version None)
Quarter: 2011Q3

REPORT INFORMATION
  Report Type: 
  Country: None (occurrence: None)
  Receive Date: 20110721
  Receipt Date: 20110701
  Transmission Date: 20111222
  Serious: Yes (Life-Threatening)
  Sender: FDA-Public Use
  Company Number: TR-BRISTOL-MYERS SQUIBB COMPANY-15764830

PATIENT
  Age: 38 Year
  Sex: Male

DRUGS (2)
  1. NAPROXEN [Concomitant]
     Dosage: TABS TAKEN 20TABS PER BOX
  2. METFORMIN HCL [Suspect]
     Dosage: 1DF:850MG TABS (TAKEN 100TABS-BOX)

REACTIONS (3)
  - SUICIDE ATTEMPT [None]
  - INTENTIONAL OVERDOSE [None]
  - LACTIC ACIDOSIS [None]
